FAERS Safety Report 4677459-8 (Version None)
Quarter: 2005Q2

REPORT INFORMATION
  Report Type: 
  Country: None (occurrence: None)
  Receive Date: 20050531
  Receipt Date: 20040722
  Transmission Date: 20051028
  Serious: Yes (Death, Hospitalization, Disabling, Other)
  Sender: FDA-Public Use
  Company Number: PHBS2004BE09816

PATIENT
  Age: 44 Year
  Sex: Male

DRUGS (20)
  1. NEORAL [Concomitant]
     Route: 065
     Dates: start: 20030601
  2. NEORAL [Concomitant]
     Dosage: UNK, UNK
     Route: 065
     Dates: start: 20020911, end: 20021230
  3. CYMEVENE [Concomitant]
     Indication: CYTOMEGALOVIRUS INFECTION
     Route: 065
     Dates: start: 20021211
  4. CYMEVENE [Concomitant]
     Dosage: UNK, UNK
     Route: 065
     Dates: start: 20020911, end: 20021116
  5. AREDIA [Suspect]
     Dosage: 90 MG, QMO
     Route: 042
     Dates: start: 19971001, end: 20020919
  6. VINCRISTINE + ADRIAMYCIN + DEXAMETHASONE [Concomitant]
     Dosage: 4 X
     Route: 065
     Dates: start: 19971001
  7. VUMON [Concomitant]
     Dosage: 2 X
     Route: 065
     Dates: start: 19980201
  8. ENDOXAN [Concomitant]
     Dosage: 2 X
     Route: 065
     Dates: start: 19980201
  9. ENDOXAN [Concomitant]
     Route: 065
     Dates: start: 19980325
  10. BONE MARROW TRANSPLANT [Concomitant]
     Dosage: STEM CELL COLLECTION
     Route: 065
     Dates: start: 19980325
  11. BONE MARROW TRANSPLANT [Concomitant]
     Dosage: AUTOLOGOUS STEMM CELL TRANSPLANT
     Route: 065
     Dates: start: 19980602
  12. BONE MARROW TRANSPLANT [Concomitant]
     Dosage: AUTOLOGOUS STEM CELL TRANSPLANT
     Route: 065
     Dates: start: 20020909
  13. BONE MARROW TRANSPLANT [Concomitant]
     Dosage: ALLOGENIC STEM CELL TRANSPLANT
     Route: 065
     Dates: start: 20021011
  14. INTRON A [Concomitant]
     Route: 065
     Dates: start: 19980724, end: 20000821
  15. MEDROL [Concomitant]
     Indication: GRAFT VERSUS HOST DISEASE
     Dosage: 8 MG/D
     Route: 065
     Dates: start: 20020714
  16. MEDROL [Concomitant]
     Route: 065
     Dates: start: 20020911, end: 20021116
  17. IMURAN [Concomitant]
     Route: 065
     Dates: start: 20020714
  18. MELPHALAN [Concomitant]
     Route: 065
     Dates: start: 20020909
  19. RADIOTHERAPY [Concomitant]
     Dosage: 25 GY AT D6-D10
     Route: 065
     Dates: start: 19971201
  20. ZOMETA [Suspect]
     Dosage: 4 MG, QMO
     Route: 042
     Dates: start: 20021129, end: 20040701

REACTIONS (23)
  - ANAEMIA [None]
  - BONE LESION [None]
  - CYTOMEGALOVIRUS INFECTION [None]
  - DEATH [None]
  - DISEASE PROGRESSION [None]
  - GRAFT VERSUS HOST DISEASE [None]
  - HYPERCALCAEMIA [None]
  - IMPAIRED HEALING [None]
  - KLEBSIELLA SEPSIS [None]
  - MYELOMA RECURRENCE [None]
  - OSTEOMYELITIS [None]
  - OSTEONECROSIS [None]
  - PAIN IN JAW [None]
  - RENAL FAILURE [None]
  - SCLERODERMA [None]
  - SINUSITIS [None]
  - SPINAL LAMINECTOMY [None]
  - STAPHYLOCOCCAL SEPSIS [None]
  - STEM CELL TRANSPLANT [None]
  - SWELLING [None]
  - TOOTH DISORDER [None]
  - TOOTH EXTRACTION [None]
  - TRISMUS [None]
